FAERS Safety Report 23940973 (Version 1)
Quarter: 2024Q2

REPORT INFORMATION
  Report Type: Spontaneous
  Country: CN (occurrence: CN)
  Receive Date: 20240605
  Receipt Date: 20240605
  Transmission Date: 20240716
  Serious: Yes (Hospitalization)
  Sender: FDA-Public Use
  Company Number: CN-Bio-Thera Solutions, Ltd.-2157789

PATIENT
  Age: 74 Year
  Sex: Male
  Weight: 53 kg

DRUGS (2)
  1. AVZIVI [Suspect]
     Active Substance: BEVACIZUMAB\BEVACIZUMAB-TNJN
     Indication: Lung adenocarcinoma
     Dates: start: 20240511, end: 20240511
  2. SODIUM CHLORIDE [Concomitant]
     Active Substance: SODIUM CHLORIDE
     Route: 041
     Dates: start: 20240511, end: 20240511

REACTIONS (3)
  - Dysphagia [Recovered/Resolved]
  - Diarrhoea [Not Recovered/Not Resolved]
  - Nausea [Recovered/Resolved]

NARRATIVE: CASE EVENT DATE: 20240511
